FAERS Safety Report 4265681-4 (Version None)
Quarter: 2004Q1

REPORT INFORMATION
  Report Type: 
  Country: None (occurrence: None)
  Receive Date: 20040107
  Receipt Date: 20040106
  Transmission Date: 20041129
  Serious: Yes (Hospitalization, Other)
  Sender: FDA-Public Use
  Company Number: FR-GLAXOSMITHKLINE-B0318951A

PATIENT
  Age: 47 Year
  Sex: Male

DRUGS (3)
  1. DEROXAT [Suspect]
     Indication: DEPRESSION
     Dosage: 100MG SINGLE DOSE
     Route: 048
     Dates: start: 20031214, end: 20031214
  2. ANTIHYPERTENSIVE [Concomitant]
     Indication: HYPERTENSION
  3. ANTIDIABETIC [Concomitant]
     Indication: DIABETES MELLITUS
     Route: 048

REACTIONS (5)
  - AGGRESSION [None]
  - ALCOHOL USE [None]
  - DISINHIBITION [None]
  - OVERDOSE [None]
  - SUICIDE ATTEMPT [None]
